FAERS Safety Report 21907009 (Version 6)
Quarter: 2023Q2

REPORT INFORMATION
  Report Type: Spontaneous
  Country: JP (occurrence: JP)
  Receive Date: 20230125
  Receipt Date: 20230614
  Transmission Date: 20230722
  Serious: Yes (Other)
  Sender: FDA-Public Use
  Company Number: JP-ASTELLAS-2022JP016076

PATIENT
  Age: 76 Year
  Sex: Male
  Weight: 168 kg

DRUGS (12)
  1. ZOLPIDEM TARTRATE [Interacting]
     Active Substance: ZOLPIDEM TARTRATE
     Indication: Insomnia
     Dosage: 10 MG (TOOK 7.5 MG AT BEDTIME, AND 2.5 MG ON AWAKENING IN THE MIDDLE OF SLEEP), START DATE: ??-???-2
     Route: 048
  2. TAMSULOSIN HYDROCHLORIDE [Suspect]
     Active Substance: TAMSULOSIN HYDROCHLORIDE
     Indication: Benign prostatic hyperplasia
     Dosage: UNK
     Route: 065
  3. TAMSULOSIN HYDROCHLORIDE [Suspect]
     Active Substance: TAMSULOSIN HYDROCHLORIDE
     Indication: Urinary retention
     Dosage: 0.1 MG
     Route: 048
     Dates: start: 20230108
  4. TAMSULOSIN HYDROCHLORIDE [Suspect]
     Active Substance: TAMSULOSIN HYDROCHLORIDE
     Dosage: 0.2 MG, Q12H
     Route: 048
  5. CALCIUM POLYCARBOPHIL [Interacting]
     Active Substance: CALCIUM POLYCARBOPHIL
     Indication: Irritable bowel syndrome
     Dosage: UNK
     Route: 048
     Dates: start: 2016
  6. CHOLECALCIFEROL [Suspect]
     Active Substance: CHOLECALCIFEROL
     Indication: Irritable bowel syndrome
     Dosage: UNK
     Route: 048
  7. RAMOSETRON HYDROCHLORIDE [Interacting]
     Active Substance: RAMOSETRON HYDROCHLORIDE
     Indication: Irritable bowel syndrome
     Dosage: UNK UNK, AS NEEDED (AT THE TIME OF ABDOMINAL PAIN, DIARRHOEA)
     Route: 048
     Dates: start: 2016, end: 202212
  8. RAMOSETRON HYDROCHLORIDE [Interacting]
     Active Substance: RAMOSETRON HYDROCHLORIDE
     Dosage: UNK
     Route: 048
  9. RAMOSETRON HYDROCHLORIDE [Interacting]
     Active Substance: RAMOSETRON HYDROCHLORIDE
     Dosage: 2.5 UG
     Route: 048
  10. TRIMEBUTINE [Concomitant]
     Active Substance: TRIMEBUTINE
     Indication: Product used for unknown indication
     Dosage: UNK UNK, UNKNOWN FREQ.
     Route: 048
  11. MIYA-BM [Concomitant]
     Active Substance: CLOSTRIDIUM BUTYRICUM SPORES STRAIN M-55
     Indication: Product used for unknown indication
     Dosage: UNK UNK, UNKNOWN FREQ.
     Route: 048
  12. GUAIAZULENE [Concomitant]
     Active Substance: GUAIAZULENE
     Indication: Product used for unknown indication
     Dosage: UNK

REACTIONS (26)
  - Urinary retention [Unknown]
  - Large intestinal obstruction [Not Recovered/Not Resolved]
  - Osteoporosis [Unknown]
  - Pollakiuria [Unknown]
  - Anal prolapse [Not Recovered/Not Resolved]
  - Hernia [Unknown]
  - Angiopathy [Unknown]
  - Varicose vein [Unknown]
  - Middle insomnia [Unknown]
  - Polyuria [Unknown]
  - Irritability [Unknown]
  - Dizziness postural [Unknown]
  - Dizziness [Unknown]
  - Dysuria [Not Recovered/Not Resolved]
  - Headache [Unknown]
  - Hypoaesthesia [Unknown]
  - Diarrhoea [Unknown]
  - Dizziness [Recovered/Resolved]
  - Pruritus [Unknown]
  - Blood pressure increased [Unknown]
  - Impaired healing [Unknown]
  - Drug eruption [Unknown]
  - Mental disorder [Unknown]
  - Product use issue [Unknown]
  - Therapeutic response increased [Unknown]
  - Product use complaint [Unknown]

NARRATIVE: CASE EVENT DATE: 20110101
